FAERS Safety Report 25625549 (Version 1)
Quarter: 2025Q3

REPORT INFORMATION
  Report Type: Spontaneous
  Country: GB (occurrence: GB)
  Receive Date: 20250731
  Receipt Date: 20250731
  Transmission Date: 20251020
  Serious: Yes (Death)
  Sender: PRINSTON PHARMACEUTICAL
  Company Number: GB-PRINSTON PHARMACEUTICAL INC.-2025PRN00239

PATIENT
  Age: 54 Year
  Sex: Male

DRUGS (6)
  1. TADALAFIL [Suspect]
     Active Substance: TADALAFIL
  2. OXYBATE [Suspect]
     Active Substance: OXYBATE
  3. METHAMPHETAMINE [Suspect]
     Active Substance: METHAMPHETAMINE
  4. AMPHETAMINE [Suspect]
     Active Substance: AMPHETAMINE
  5. SILDENAFIL [Suspect]
     Active Substance: SILDENAFIL
  6. KETAMINE [Suspect]
     Active Substance: KETAMINE

REACTIONS (1)
  - Toxicity to various agents [Fatal]
